FAERS Safety Report 5526239-X (Version None)
Quarter: 2007Q4

REPORT INFORMATION
  Report Type: 
  Country: None (occurrence: None)
  Receive Date: 20071127
  Receipt Date: 20071120
  Transmission Date: 20080405
  Serious: Yes (Hospitalization)
  Sender: FDA-Public Use
  Company Number: PHHO2007US15375

PATIENT
  Age: 60 Year
  Sex: Female

DRUGS (1)
  1. AMN107 [Suspect]
     Indication: CHRONIC MYELOID LEUKAEMIA
     Dosage: 400 MG, BID
     Route: 048
     Dates: start: 20060104

REACTIONS (4)
  - CARDIAC FAILURE CONGESTIVE [None]
  - CONCOMITANT DISEASE PROGRESSION [None]
  - CORONARY ARTERY DISEASE [None]
  - DYSPNOEA [None]
